FAERS Safety Report 9136881 (Version 1)
Quarter: 2013Q1

REPORT INFORMATION
  Report Type: Spontaneous
  Country: US (occurrence: US)
  Receive Date: 20130304
  Receipt Date: 20130304
  Transmission Date: 20140127
  Serious: No
  Sender: FDA-Public Use
  Company Number: US-ABBOTT-12P-163-0943720-00

PATIENT
  Age: 63 Year
  Sex: Male

DRUGS (2)
  1. ANDROGEL 1% [Suspect]
     Indication: BLOOD TESTOSTERONE DECREASED
     Route: 061
     Dates: end: 201203
  2. TRIBENZOR [Suspect]
     Indication: HYPERTENSION

REACTIONS (2)
  - Tinnitus [Not Recovered/Not Resolved]
  - Swelling [Not Recovered/Not Resolved]
